FAERS Safety Report 16804776 (Version 1)
Quarter: 2019Q3

REPORT INFORMATION
  Report Type: Spontaneous
  Country: US (occurrence: US)
  Receive Date: 20190913
  Receipt Date: 20190913
  Transmission Date: 20191005
  Serious: Yes (Other)
  Sender: FDA-Public Use
  Company Number: US-TEVA-2019-US-1106306

PATIENT
  Age: 73 Year
  Sex: Female

DRUGS (1)
  1. BUPRENORPHINE PATCH [Suspect]
     Active Substance: BUPRENORPHINE
     Indication: BACK PAIN
     Dosage: DOSE STRENGTH: 5 MCG/HR
     Route: 062
     Dates: start: 201908

REACTIONS (5)
  - Dyspnoea [Unknown]
  - Fatigue [Unknown]
  - Tinnitus [Unknown]
  - Palpitations [Unknown]
  - Dizziness [Unknown]

NARRATIVE: CASE EVENT DATE: 201908
